FAERS Safety Report 8505251 (Version 2)
Quarter: 2012Q4

REPORT INFORMATION
  Report Type: 
  Country: CA (occurrence: CA)
  Receive Date: 20120412
  Receipt Date: 20121031
  Transmission Date: 20130627
  Serious: Yes (Hospitalization)
  Sender: FDA-Public Use
  Company Number: CA-BAYER-2012-033201

PATIENT
  Age: 27 Year
  Sex: Female
  Weight: 55 kg

DRUGS (11)
  1. CIPRO [Suspect]
     Indication: PNEUMONIA
     Dosage: UNK
     Route: 065
     Dates: start: 20111108
  2. REMICADE [Suspect]
     Indication: CROHN^S DISEASE
     Dosage: 300 mg, Q2MON
     Route: 065
     Dates: start: 201106
  3. ATIVAN [Concomitant]
     Dosage: Daily dose 1 mg
  4. FENTANYL [Concomitant]
     Dosage: 25 �g, Q72HR
  5. MAXERAN [Concomitant]
     Dosage: 10 mg, Q72HR
     Route: 048
  6. PERCOCET [Concomitant]
     Dosage: UNK UNK, PRN
     Route: 048
  7. REACTINE [CETIRIZINE] [Concomitant]
     Dosage: 2 DF, QD
  8. VITAMIN B12 [Concomitant]
     Dosage: 1 DF, Q2WK
  9. WELLBUTRIN [Concomitant]
     Dosage: 1 DF, QD
  10. ZOFRAN [Concomitant]
     Dosage: 4-8 mg every 12 hours, PRN
     Route: 048
  11. ZOPICLONE [Concomitant]
     Dosage: 7.5 mg, HS

REACTIONS (2)
  - Drug hypersensitivity [Unknown]
  - Pneumonia [Not Recovered/Not Resolved]
